FAERS Safety Report 5131775-4 (Version None)
Quarter: 2006Q4

REPORT INFORMATION
  Report Type: 
  Country: None (occurrence: None)
  Receive Date: 20061020
  Receipt Date: 20060918
  Transmission Date: 20070319
  Serious: Yes (Hospitalization)
  Sender: FDA-Public Use
  Company Number: US-MERCK-0609USA03845

PATIENT
  Age: 75 Year
  Sex: Female
  Weight: 68 kg

DRUGS (1)
  1. FOSAMAX [Suspect]
     Indication: OSTEOPOROSIS
     Route: 048
     Dates: start: 19980101

REACTIONS (1)
  - CHONDROSARCOMA [None]
